FAERS Safety Report 16339476 (Version 6)
Quarter: 2020Q2

REPORT INFORMATION
  Report Type: Spontaneous
  Country: US (occurrence: US)
  Receive Date: 20190521
  Receipt Date: 20200417
  Transmission Date: 20200713
  Serious: Yes (Other)
  Sender: FDA-Public Use
  Company Number: US-SA-2019SA135250

PATIENT
  Age: 59 Year
  Sex: Female

DRUGS (2)
  1. DUPIXENT [Suspect]
     Active Substance: DUPILUMAB
     Indication: PRODUCT USED FOR UNKNOWN INDICATION
     Dosage: 300 MG, QOW
     Route: 058
     Dates: start: 201904
  2. DUPIXENT [Suspect]
     Active Substance: DUPILUMAB
     Dosage: 300 MG, QOW
     Route: 058

REACTIONS (9)
  - Lacrimation increased [Unknown]
  - Fall [Unknown]
  - Influenza [Unknown]
  - Musculoskeletal chest pain [Unknown]
  - Eyelid margin crusting [Unknown]
  - Product dose omission [Unknown]
  - Rash [Unknown]
  - Headache [Unknown]
  - Chest injury [Unknown]

NARRATIVE: CASE EVENT DATE: 20190512
